FAERS Safety Report 8616379-0 (Version None)
Quarter: 2012Q3

REPORT INFORMATION
  Report Type: 
  Country: None (occurrence: None)
  Receive Date: 20120815
  Receipt Date: 20120815
  Transmission Date: 20120928
  Serious: Yes (Disabling)
  Sender: FDA-Public Use
  Company Number: None

PATIENT
  Age: 37 Year
  Sex: Male
  Weight: 102.0593 kg

DRUGS (1)
  1. LYRICA [Suspect]
     Indication: SURGERY
     Dosage: 75MG 2XDAILY, DENTAL
     Route: 004
     Dates: start: 20120808, end: 20120811

REACTIONS (1)
  - SENSITIVITY OF TEETH [None]
